FAERS Safety Report 10309836 (Version 5)
Quarter: 2015Q2

REPORT INFORMATION
  Report Type: Spontaneous
  Country: US (occurrence: US)
  Receive Date: 20140717
  Receipt Date: 20150417
  Transmission Date: 20150821
  Serious: Yes (Death, Hospitalization)
  Sender: FDA-Public Use
  Company Number: US-PFIZER INC-2014196960

PATIENT
  Age: 80 Year
  Sex: Male

DRUGS (2)
  1. REVATIO [Suspect]
     Active Substance: SILDENAFIL CITRATE
     Indication: PULMONARY HYPERTENSION
     Dosage: 20 MG, EVERY 8 HR
  2. VIAGRA [Suspect]
     Active Substance: SILDENAFIL CITRATE
     Indication: PULMONARY HYPERTENSION
     Dosage: 20 MG, EVERY 8 HR

REACTIONS (9)
  - Chronic respiratory failure [Fatal]
  - Disorientation [Unknown]
  - Pulmonary hypertension [Fatal]
  - Confusional state [Unknown]
  - Chronic obstructive pulmonary disease [Fatal]
  - Cardio-respiratory arrest [Fatal]
  - Fall [Unknown]
  - Hallucination [Unknown]
  - Product use issue [Unknown]

NARRATIVE: CASE EVENT DATE: 20140528
